FAERS Safety Report 5979191-7 (Version None)
Quarter: 2008Q4

REPORT INFORMATION
  Report Type: 
  Country: None (occurrence: None)
  Receive Date: 20081204
  Receipt Date: 20080529
  Transmission Date: 20090506
  Serious: No
  Sender: FDA-Public Use
  Company Number: US-ABBOTT-08P-163-0454259-00

PATIENT
  Sex: Female
  Weight: 60.382 kg

DRUGS (4)
  1. TRICOR [Suspect]
     Indication: BLOOD CHOLESTEROL INCREASED
     Route: 048
  2. TRICOR [Suspect]
     Indication: BLOOD TRIGLYCERIDES INCREASED
  3. MULTI-VITAMIN [Concomitant]
     Indication: VITAMIN SUPPLEMENTATION
     Route: 048
  4. CALTRATE [Concomitant]
     Indication: MINERAL SUPPLEMENTATION

REACTIONS (1)
  - PRURITUS [None]
